FAERS Safety Report 15399589 (Version 1)
Quarter: 2018Q3

REPORT INFORMATION
  Report Type: Report from Study
  Country: US (occurrence: US)
  Receive Date: 20180918
  Receipt Date: 20180918
  Transmission Date: 20181010
  Serious: No
  Sender: FDA-Public Use
  Company Number: US-AMGEN-USASL2018074407

PATIENT
  Age: 48 Year
  Sex: Female

DRUGS (4)
  1. NEUPOGEN [Suspect]
     Active Substance: FILGRASTIM
     Indication: GRAFT THROMBOSIS
  2. NEUPOGEN [Suspect]
     Active Substance: FILGRASTIM
     Indication: OVARIAN CANCER
     Dosage: UNK
     Route: 065
  3. NEUPOGEN [Suspect]
     Active Substance: FILGRASTIM
     Indication: IMPLANT SITE THROMBOSIS
  4. NEUPOGEN [Suspect]
     Active Substance: FILGRASTIM
     Indication: DEVICE RELATED THROMBOSIS

REACTIONS (1)
  - Off label use [Unknown]
